FAERS Safety Report 14567496 (Version 3)
Quarter: 2018Q2

REPORT INFORMATION
  Report Type: Spontaneous
  Country: ES (occurrence: ES)
  Receive Date: 20180223
  Receipt Date: 20180515
  Transmission Date: 20180711
  Serious: Yes (Hospitalization, Other)
  Sender: FDA-Public Use
  Company Number: ES-AUROBINDO-AUR-APL-2018-009325

PATIENT
  Age: 64 Year
  Sex: Male

DRUGS (18)
  1. SALBUTAMOL [Concomitant]
     Active Substance: ALBUTEROL
     Indication: PRODUCT USED FOR UNKNOWN INDICATION
  2. GLYCOPYRRONIUM [Concomitant]
     Active Substance: GLYCOPYRRONIUM
     Indication: PRODUCT USED FOR UNKNOWN INDICATION
  3. INDACATEROL [Concomitant]
     Active Substance: INDACATEROL
     Indication: PRODUCT USED FOR UNKNOWN INDICATION
  4. AMIODARONE [Suspect]
     Active Substance: AMIODARONE
     Indication: ATRIAL FIBRILLATION
     Dosage: 200 MILLIGRAM, TWO TIMES A DAY
  5. ERLOTINIB [Interacting]
     Active Substance: ERLOTINIB
     Indication: SQUAMOUS CELL CARCINOMA OF LUNG
     Dosage: 150 MILLIGRAM
  6. ERLOTINIB [Interacting]
     Active Substance: ERLOTINIB
     Dosage: 150 MILLIGRAM
  7. AMIODARONE [Interacting]
     Active Substance: AMIODARONE
  8. AMIODARONE [Interacting]
     Active Substance: AMIODARONE
     Dosage: DAY 0 ; IN TOTAL
     Route: 040
  9. AMIODARONE [Interacting]
     Active Substance: AMIODARONE
     Dosage: DAY 0 ; IN TOTAL
     Route: 040
  10. AMIODARONE [Interacting]
     Active Substance: AMIODARONE
  11. ALLOPURINOL. [Concomitant]
     Active Substance: ALLOPURINOL
     Indication: PRODUCT USED FOR UNKNOWN INDICATION
  12. AMIODARONE [Interacting]
     Active Substance: AMIODARONE
     Dosage: 200 MILLIGRAM
  13. CLOPIDOGREL [Concomitant]
     Active Substance: CLOPIDOGREL BISULFATE
     Indication: ATRIAL FIBRILLATION
  14. AMIODARONE [Interacting]
     Active Substance: AMIODARONE
     Dosage: DAY 0 ; IN TOTAL
     Route: 040
  15. ERLOTINIB [Interacting]
     Active Substance: ERLOTINIB
     Indication: NON-SMALL CELL LUNG CANCER
     Route: 065
  16. ERLOTINIB [Interacting]
     Active Substance: ERLOTINIB
     Dosage: 150 MILLIGRAM
  17. AMIODARONE [Interacting]
     Active Substance: AMIODARONE
  18. AMIODARONE [Interacting]
     Active Substance: AMIODARONE

REACTIONS (15)
  - Tonic clonic movements [Recovered/Resolved]
  - Transient ischaemic attack [Recovered/Resolved]
  - Drug interaction [Recovered/Resolved]
  - Neurotoxicity [Recovered/Resolved]
  - Hemiparesis [Recovered/Resolved]
  - Coma scale [Recovered/Resolved]
  - Paralysis [Recovered/Resolved]
  - Paraesthesia [Recovered/Resolved]
  - Atrial fibrillation [Recovered/Resolved]
  - Headache [Recovered/Resolved]
  - Dizziness [Recovered/Resolved]
  - Asthenia [Recovered/Resolved]
  - Aphasia [Recovered/Resolved]
  - Muscular weakness [Recovered/Resolved]
  - Generalised tonic-clonic seizure [Recovered/Resolved]
